FAERS Safety Report 9910071 (Version 2)
Quarter: 2014Q1

REPORT INFORMATION
  Report Type: Spontaneous
  Country: US (occurrence: None)
  Receive Date: 20140212
  Receipt Date: 20140219
  Transmission Date: 20141002
  Serious: Yes (Death)
  Sender: FDA-Public Use
  Company Number: SYM-2014-17081

PATIENT
  Age: 82 Year
  Sex: Female

DRUGS (3)
  1. XENAZINE [Suspect]
     Indication: HUNTINGTON^S DISEASE
     Route: 048
     Dates: start: 20110401
  2. XENAZINE [Suspect]
     Indication: DYSKINESIA
     Route: 048
     Dates: start: 20110401
  3. XENAZINE [Suspect]
     Route: 048
     Dates: start: 20110401

REACTIONS (2)
  - Death [None]
  - Off label use [None]
